FAERS Safety Report 19056984 (Version 5)
Quarter: 2021Q3

REPORT INFORMATION
  Report Type: Report from Study
  Country: US (occurrence: US)
  Receive Date: 20210325
  Receipt Date: 20210726
  Transmission Date: 20211014
  Serious: Yes (Other)
  Sender: FDA-Public Use
  Company Number: US-GILEAD-2021-0518534

PATIENT
  Age: 49 Year
  Sex: Female

DRUGS (19)
  1. TRELEGY ELLIPTA [Concomitant]
     Active Substance: FLUTICASONE FUROATE\UMECLIDINIUM BROMIDE\VILANTEROL TRIFENATATE
  2. AMITRIPTYLINE [Concomitant]
     Active Substance: AMITRIPTYLINE
  3. SYMBICORT [Concomitant]
     Active Substance: BUDESONIDE\FORMOTEROL FUMARATE DIHYDRATE
  4. PREDNISONE. [Concomitant]
     Active Substance: PREDNISONE
  5. OPSUMIT [Concomitant]
     Active Substance: MACITENTAN
  6. FOLIC ACID. [Concomitant]
     Active Substance: FOLIC ACID
  7. AMLODIPINE [Concomitant]
     Active Substance: AMLODIPINE BESYLATE
  8. EMGALITY [Concomitant]
     Active Substance: GALCANEZUMAB-GNLM
  9. EMGALITY [Concomitant]
     Active Substance: GALCANEZUMAB-GNLM
  10. ADVAIR HFA [Concomitant]
     Active Substance: FLUTICASONE PROPIONATE\SALMETEROL XINAFOATE
  11. TRELEGY ELLIPTA [Concomitant]
     Active Substance: FLUTICASONE FUROATE\UMECLIDINIUM BROMIDE\VILANTEROL TRIFENATATE
  12. SILDENAFIL. [Concomitant]
     Active Substance: SILDENAFIL
  13. ATORVASTATIN [Concomitant]
     Active Substance: ATORVASTATIN
  14. AMBRISENTAN [Suspect]
     Active Substance: AMBRISENTAN
     Indication: PULMONARY HYPERTENSION
     Dosage: 10 MG, QD
     Route: 065
  15. FUROSEMIDE. [Concomitant]
     Active Substance: FUROSEMIDE
  16. METOPROLOL. [Concomitant]
     Active Substance: METOPROLOL
  17. DULERA [Concomitant]
     Active Substance: FORMOTEROL FUMARATE DIHYDRATE\MOMETASONE FUROATE
  18. WARFARIN [Concomitant]
     Active Substance: WARFARIN
  19. LAMOTRIGINE. [Concomitant]
     Active Substance: LAMOTRIGINE

REACTIONS (12)
  - Chronic obstructive pulmonary disease [Not Recovered/Not Resolved]
  - Productive cough [Not Recovered/Not Resolved]
  - Cardiac disorder [Not Recovered/Not Resolved]
  - Oxygen saturation decreased [Unknown]
  - Somnolence [Not Recovered/Not Resolved]
  - Fatigue [Not Recovered/Not Resolved]
  - Oxygen saturation decreased [Recovered/Resolved]
  - Sluggishness [Not Recovered/Not Resolved]
  - Wheezing [Unknown]
  - Dyspnoea exertional [Not Recovered/Not Resolved]
  - Drug ineffective [Not Recovered/Not Resolved]
  - Depression [Not Recovered/Not Resolved]
